FAERS Safety Report 17213616 (Version 2)
Quarter: 2020Q1

REPORT INFORMATION
  Report Type: Spontaneous
  Country: ME (occurrence: ME)
  Receive Date: 20191230
  Receipt Date: 20200121
  Transmission Date: 20200409
  Serious: Yes (Other)
  Sender: FDA-Public Use
  Company Number: ME-PFIZER INC-2019557012

PATIENT
  Sex: Female
  Weight: 70 kg

DRUGS (2)
  1. FRAGMIN [Suspect]
     Active Substance: DALTEPARIN SODIUM
     Dosage: 5000 IU, ONCE A DAY
  2. FRAGMIN [Suspect]
     Active Substance: DALTEPARIN SODIUM
     Indication: HIP FRACTURE
     Dosage: 5000 IU, TWICE A DAY

REACTIONS (1)
  - Thrombosis [Recovered/Resolved with Sequelae]
